FAERS Safety Report 14797871 (Version 1)
Quarter: 2018Q2

REPORT INFORMATION
  Report Type: Report from Study
  Country: None (occurrence: BR)
  Receive Date: 20180424
  Receipt Date: 20180424
  Transmission Date: 20180711
  Serious: Yes (Hospitalization, Other)
  Sender: FDA-Public Use
  Company Number: BR-ABBVIE-18K-020-2330861-00

PATIENT
  Age: 39 Year
  Sex: Male
  Weight: 96 kg

DRUGS (4)
  1. PREDSIM [Concomitant]
     Active Substance: PREDNISOLONE
     Indication: ANKYLOSING SPONDYLITIS
  2. HUMIRA [Suspect]
     Active Substance: ADALIMUMAB
     Indication: ANKYLOSING SPONDYLITIS
     Route: 058
     Dates: start: 20170509
  3. METHOTREXATE. [Concomitant]
     Active Substance: METHOTREXATE
     Indication: ANKYLOSING SPONDYLITIS
  4. CALCIUM [Concomitant]
     Active Substance: CALCIUM
     Indication: ANKYLOSING SPONDYLITIS

REACTIONS (11)
  - Fall [Not Recovered/Not Resolved]
  - Patient-device incompatibility [Not Recovered/Not Resolved]
  - Foot fracture [Not Recovered/Not Resolved]
  - Stress [Recovering/Resolving]
  - Arthralgia [Unknown]
  - Fracture nonunion [Not Recovered/Not Resolved]
  - Osteitis [Not Recovered/Not Resolved]
  - Arthritis [Unknown]
  - Osteonecrosis [Not Recovered/Not Resolved]
  - Necrosis [Not Recovered/Not Resolved]
  - Spondylitis [Unknown]

NARRATIVE: CASE EVENT DATE: 201709
